FAERS Safety Report 13769318 (Version 1)
Quarter: 2017Q3

REPORT INFORMATION
  Report Type: Report from Study
  Country: US (occurrence: US)
  Receive Date: 20170719
  Receipt Date: 20170719
  Transmission Date: 20171127
  Serious: Yes (Other)
  Sender: FDA-Public Use
  Company Number: US-GILEAD-2017-0283151

PATIENT
  Age: 52 Year
  Sex: Female

DRUGS (1)
  1. LEDIPASVIR/SOFOSBUVIR [Suspect]
     Active Substance: LEDIPASVIR\SOFOSBUVIR
     Indication: HEPATITIS C
     Dosage: 1 DF, QD
     Route: 048
     Dates: start: 20170706

REACTIONS (4)
  - Uterine spasm [Unknown]
  - Frequent bowel movements [Not Recovered/Not Resolved]
  - Postmenopausal haemorrhage [Unknown]
  - Arthropathy [Not Recovered/Not Resolved]
